FAERS Safety Report 10035579 (Version 1)
Quarter: 2014Q1

REPORT INFORMATION
  Report Type: Report from Study
  Country: US (occurrence: US)
  Receive Date: 20140325
  Receipt Date: 20140325
  Transmission Date: 20141002
  Serious: Yes (Other)
  Sender: FDA-Public Use
  Company Number: PHEH2014US005728

PATIENT
  Sex: Female

DRUGS (3)
  1. GILENYA [Suspect]
     Indication: MULTIPLE SCLEROSIS
     Dosage: 0.5 MG, QD
     Route: 048
     Dates: start: 20110518
  2. GABAPENTIN [Concomitant]
     Dosage: 300 MG, UNK
  3. CRANBERRY [Concomitant]
     Dosage: 200 MG, UNK

REACTIONS (1)
  - Fall [Unknown]
